FAERS Safety Report 11270844 (Version 2)
Quarter: 2015Q3

REPORT INFORMATION
  Report Type: Spontaneous
  Country: US (occurrence: US)
  Receive Date: 20150714
  Receipt Date: 20150716
  Transmission Date: 20151125
  Serious: No
  Sender: FDA-Public Use
  Company Number: PHEH2015US010578

PATIENT
  Age: 79 Year
  Sex: Male

DRUGS (1)
  1. EXELON PATCH [Suspect]
     Active Substance: RIVASTIGMINE
     Indication: PRODUCT USED FOR UNKNOWN INDICATION
     Dosage: 9.5 MG/24 HOUR (18 MG DAILY RIVASTIGMINE BASE 10 CM2 PATCH)
     Route: 062

REACTIONS (4)
  - Drug administration error [Unknown]
  - Motion sickness [Unknown]
  - Vomiting [Unknown]
  - Malaise [Unknown]
